FAERS Safety Report 18744612 (Version 2)
Quarter: 2021Q1

REPORT INFORMATION
  Report Type: Spontaneous
  Country: JP (occurrence: JP)
  Receive Date: 20210115
  Receipt Date: 20210225
  Transmission Date: 20210419
  Serious: Yes (Hospitalization)
  Sender: FDA-Public Use
  Company Number: JP-AMGEN-JPNSP2021006059

PATIENT
  Sex: Male

DRUGS (5)
  1. REGPARA [Suspect]
     Active Substance: CINACALCET HYDROCHLORIDE
     Indication: HYPERPARATHYROIDISM SECONDARY
     Dosage: 75 MG, QD
     Route: 048
     Dates: end: 201805
  2. ORKEDIA [Suspect]
     Active Substance: EVOCALCET
     Indication: HYPERPARATHYROIDISM SECONDARY
     Dosage: 4 MG, QD
     Route: 048
     Dates: start: 201906
  3. ORKEDIA [Suspect]
     Active Substance: EVOCALCET
     Dosage: 7 MG, QD
     Route: 048
     Dates: start: 20190719
  4. ORKEDIA [Suspect]
     Active Substance: EVOCALCET
     Dosage: 6 MG, QD
     Route: 048
  5. ORKEDIA [Suspect]
     Active Substance: EVOCALCET
     Dosage: 12 MG
     Route: 048

REACTIONS (5)
  - Cholecystitis [Recovered/Resolved]
  - Incorrect dosage administered [Unknown]
  - Gastrointestinal disorder [Recovered/Resolved]
  - Decreased appetite [Recovered/Resolved]
  - Cholecystitis [Recovered/Resolved]

NARRATIVE: CASE EVENT DATE: 2018
